FAERS Safety Report 8884626 (Version 3)
Quarter: 2013Q1

REPORT INFORMATION
  Report Type: Spontaneous
  Country: US (occurrence: US)
  Receive Date: 20121102
  Receipt Date: 20130206
  Transmission Date: 20140127
  Serious: Yes (Other)
  Sender: FDA-Public Use
  Company Number: PHHY2012US098359

PATIENT
  Sex: Female
  Weight: 71.2 kg

DRUGS (8)
  1. GILENYA [Suspect]
     Indication: MULTIPLE SCLEROSIS
     Dosage: 0.5 MG, QD
     Route: 048
     Dates: start: 20110131, end: 20121025
  2. SYNTHROID [Concomitant]
     Route: 048
  3. LIPITOR [Concomitant]
     Route: 048
  4. ZOLOFT [Concomitant]
     Route: 048
  5. AVONEX [Concomitant]
  6. FLEXERIL [Concomitant]
     Route: 048
  7. ASA [Concomitant]
     Route: 048
  8. VIT D [Concomitant]
     Route: 048

REACTIONS (2)
  - Blindness [Not Recovered/Not Resolved]
  - White blood cell count decreased [Recovered/Resolved]
